FAERS Safety Report 19180608 (Version 2)
Quarter: 2021Q3

REPORT INFORMATION
  Report Type: Spontaneous
  Country: US (occurrence: US)
  Receive Date: 20210426
  Receipt Date: 20210804
  Transmission Date: 20211014
  Serious: Yes (Death, Hospitalization, Other)
  Sender: FDA-Public Use
  Company Number: US-BRISTOL-MYERS SQUIBB COMPANY-BMS-2021-040107

PATIENT
  Age: 67 Year
  Sex: Male

DRUGS (1)
  1. ELIQUIS [Suspect]
     Active Substance: APIXABAN
     Indication: THROMBOSIS
     Dosage: 5 MILLIGRAM, BID
     Route: 048
     Dates: start: 20201114, end: 20210615

REACTIONS (7)
  - Intentional product use issue [Unknown]
  - Sepsis [Fatal]
  - Peripheral vascular disorder [Fatal]
  - Respiratory failure [Fatal]
  - Colitis ischaemic [Fatal]
  - Aortic aneurysm rupture [Unknown]
  - Hypotension [Unknown]
